FAERS Safety Report 10269368 (Version 1)
Quarter: 2014Q3

REPORT INFORMATION
  Report Type: Spontaneous
  Country: DK (occurrence: DK)
  Receive Date: 20140701
  Receipt Date: 20140701
  Transmission Date: 20150326
  Serious: Yes (Death, Life-Threatening, Hospitalization)
  Sender: FDA-Public Use
  Company Number: DK-ACCORD-024422

PATIENT
  Age: 57 Year
  Sex: Female
  Weight: 59 kg

DRUGS (8)
  1. IBUPROFEN ACTAVIS [Concomitant]
     Indication: PAIN
     Route: 048
     Dates: start: 2012
  2. LEVETIRACETAM ACCORD [Suspect]
     Active Substance: LEVETIRACETAM
     Indication: EPILEPSY
     Dosage: STRENGTH: 500 MG
     Route: 048
     Dates: start: 20120917
  3. NOZINAN [Concomitant]
     Active Substance: LEVOMEPROMAZINE
     Indication: PSYCHOTIC BEHAVIOUR
     Route: 048
  4. PANTOPRAZOL ^SANDOZ^ [Concomitant]
     Indication: GASTRIC ULCER
     Route: 048
  5. ATARAX [Suspect]
     Active Substance: HYDROXYZINE\HYDROXYZINE HYDROCHLORIDE
     Indication: ACARODERMATITIS
     Dosage: STRENGTH: 25 MG.
     Route: 048
     Dates: start: 20140410
  6. APOVIT B-COMBIN [Concomitant]
     Indication: VITAMIN SUPPLEMENTATION
     Route: 048
  7. PHENOBARBITAL ^DLF^ [Concomitant]
     Indication: EPILEPSY
     Route: 048
  8. NIX [Concomitant]
     Active Substance: PERMETHRIN
     Indication: ACARODERMATITIS
     Dosage: LUBRICATED INTO TWO TIMES WITH 14 DAYS SPACES. STRENGTH: 5%.
     Route: 003
     Dates: start: 20140410

REACTIONS (3)
  - Arthralgia [Not Recovered/Not Resolved]
  - Toxic epidermal necrolysis [Fatal]
  - Sepsis [Fatal]

NARRATIVE: CASE EVENT DATE: 201404
